FAERS Safety Report 16559667 (Version 1)
Quarter: 2019Q3

REPORT INFORMATION
  Report Type: Spontaneous
  Country: US (occurrence: US)
  Receive Date: 20190711
  Receipt Date: 20190711
  Transmission Date: 20191004
  Serious: No
  Sender: FDA-Public Use
  Company Number: US-PFIZER INC-2019293066

PATIENT
  Age: 63 Year
  Sex: Female

DRUGS (2)
  1. SOMATULINE DEPOT [Suspect]
     Active Substance: LANREOTIDE ACETATE
     Dosage: UNK
  2. SUTENT [Suspect]
     Active Substance: SUNITINIB MALATE
     Dosage: UNK, (SHE USED TO TAKE SUTENT IN THE MORNING, THEN CHANGED IT TO TAKING IT AT NIGHT AT 8PM)

REACTIONS (2)
  - Fatigue [Unknown]
  - Somnolence [Unknown]
